FAERS Safety Report 17276030 (Version 1)
Quarter: 2020Q1

REPORT INFORMATION
  Report Type: Spontaneous
  Country: US (occurrence: US)
  Receive Date: 20191224
  Receipt Date: 20191224
  Transmission Date: 20200409
  Serious: Yes (Life-Threatening)
  Sender: FDA-Public Use
  Company Number: None

PATIENT
  Age: 74 Year
  Sex: Male

DRUGS (1)
  1. ONDANSETRON HYDROCHLORIDE. [Suspect]
     Active Substance: ONDANSETRON HYDROCHLORIDE
     Indication: NAUSEA
     Route: 042
     Dates: start: 20191223, end: 20191223

REACTIONS (10)
  - Dyspnoea [None]
  - Pulmonary embolism [None]
  - Chest pain [None]
  - Urticaria [None]
  - Aspiration [None]
  - Paraneoplastic syndrome [None]
  - Pruritus [None]
  - Oxygen saturation decreased [None]
  - Myocardial infarction [None]
  - Drug hypersensitivity [None]

NARRATIVE: CASE EVENT DATE: 20191223
